FAERS Safety Report 10254945 (Version 1)
Quarter: 2014Q2

REPORT INFORMATION
  Report Type: Spontaneous
  Country: US (occurrence: None)
  Receive Date: 20140620
  Receipt Date: 20140620
  Transmission Date: 20141212
  Serious: Yes (Disabling)
  Sender: FDA-Public Use
  Company Number: None

PATIENT
  Age: 57 Year
  Sex: Female
  Weight: 66.68 kg

DRUGS (1)
  1. NADOLOL [Suspect]
     Indication: SUPRAVENTRICULAR TACHYCARDIA
     Route: 048
     Dates: start: 20140109, end: 20140617

REACTIONS (15)
  - Dizziness [None]
  - Vision blurred [None]
  - Fatigue [None]
  - Alopecia [None]
  - Nightmare [None]
  - Weight increased [None]
  - Confusional state [None]
  - Memory impairment [None]
  - Disturbance in attention [None]
  - Insomnia [None]
  - Peripheral coldness [None]
  - Flatulence [None]
  - Impaired work ability [None]
  - Amnesia [None]
  - Mental impairment [None]
